FAERS Safety Report 5083833-0 (Version None)
Quarter: 2006Q3

REPORT INFORMATION
  Report Type: 
  Country: None (occurrence: None)
  Receive Date: 20060818
  Receipt Date: 20060810
  Transmission Date: 20061208
  Serious: Yes (Hospitalization)
  Sender: FDA-Public Use
  Company Number: AU-JNJFOC-20060802674

PATIENT
  Sex: Female

DRUGS (7)
  1. CAELYX [Suspect]
     Route: 042
  2. CAELYX [Suspect]
     Indication: OVARIAN CANCER
     Route: 042
  3. CARBOPLATIN [Suspect]
     Route: 042
  4. CARBOPLATIN [Suspect]
     Indication: OVARIAN CANCER
     Route: 042
  5. FENTANYL [Suspect]
     Indication: DRUG USE FOR UNKNOWN INDICATION
  6. COLOXYL AND SENNA [Concomitant]
  7. DOCUSATE SODIUM AND SENNOSIDES [Concomitant]

REACTIONS (2)
  - DEHYDRATION [None]
  - VOMITING [None]
